FAERS Safety Report 17054104 (Version 1)
Quarter: 2019Q4

REPORT INFORMATION
  Report Type: Spontaneous
  Country: DE (occurrence: DE)
  Receive Date: 20191120
  Receipt Date: 20191120
  Transmission Date: 20200122
  Serious: Yes (Hospitalization, Other)
  Sender: FDA-Public Use
  Company Number: NVSC2019DE037827

PATIENT
  Sex: Female

DRUGS (1)
  1. KYMRIAH [Suspect]
     Active Substance: TISAGENLECLEUCEL
     Indication: DIFFUSE LARGE B-CELL LYMPHOMA
     Dosage: 1 DF
     Route: 065
     Dates: start: 2019, end: 2019

REACTIONS (4)
  - Cytokine release syndrome [Recovering/Resolving]
  - Cardiogenic shock [Recovering/Resolving]
  - Neurotoxicity [Recovering/Resolving]
  - Tachycardia [Recovering/Resolving]
